FAERS Safety Report 9158799 (Version 4)
Quarter: 2013Q2

REPORT INFORMATION
  Report Type: Spontaneous
  Country: US (occurrence: US)
  Receive Date: 20130312
  Receipt Date: 20130516
  Transmission Date: 20140414
  Serious: Yes (Other)
  Sender: FDA-Public Use
  Company Number: US-AMGEN-USASP2013014505

PATIENT
  Age: 78 Year
  Sex: Male
  Weight: 74.38 kg

DRUGS (22)
  1. ARANESP [Suspect]
     Indication: NEPHROGENIC ANAEMIA
     Dosage: 300 MUG, QWK
     Route: 058
     Dates: start: 20080509
  2. ADVAIR [Concomitant]
     Dosage: UNK
     Dates: start: 20120423
  3. ALLOPURINOL [Concomitant]
     Dosage: 100 MG, BID
     Route: 048
     Dates: start: 20130124
  4. ASPIRIN [Concomitant]
     Dosage: 81 MG, QOD
     Route: 048
     Dates: start: 20121018
  5. BYSTOLIC [Concomitant]
     Dosage: 5 MG, QD
     Route: 048
     Dates: start: 20121018
  6. CALCITROL                          /00508501/ [Concomitant]
     Dosage: 0.5 MUG, QD
     Route: 048
     Dates: start: 20120604
  7. COENZYME Q10 [Concomitant]
     Dosage: 200 MG, QD
     Route: 048
  8. COMBIVENT [Concomitant]
     Dosage: UNK UNK, AS NECESSARY
     Route: 045
     Dates: start: 20120127
  9. DIGOXIN [Concomitant]
     Dosage: 125 MUG, QOD
     Route: 048
     Dates: start: 20121119
  10. VITAMIN D2 [Concomitant]
     Dosage: 50000 UNK, Q2WK
     Dates: start: 20120806
  11. FUROSEMIDE [Concomitant]
     Dosage: 40 MG, BID
     Route: 048
     Dates: start: 20130222
  12. ISOSORBIDE MONONITRATE [Concomitant]
     Dosage: 60 MG, QD
     Route: 048
     Dates: start: 20130201
  13. LEVOTHYROXINE [Concomitant]
     Dosage: 150 MUG, QD
     Route: 048
     Dates: start: 20120127
  14. MAGNESIUM [Concomitant]
     Dosage: 400 MG, BID
     Route: 048
  15. MICARDIS [Concomitant]
     Dosage: 20 MG, QD
     Route: 048
     Dates: start: 20130227
  16. MYFORTIC [Concomitant]
     Dosage: 360 MG, BID
     Route: 048
  17. PANTOPRAZOLE [Concomitant]
     Dosage: 40 MG, QD
     Route: 048
     Dates: start: 20130102
  18. PREDNISONE [Concomitant]
     Dosage: 5 MG, QD
     Dates: start: 20120525
  19. PROGRAF [Concomitant]
     Dosage: 1 MG, UNK
     Route: 048
     Dates: start: 20120405
  20. ROPINIROLE [Concomitant]
     Dosage: 0.5 MG, QD
     Dates: start: 20130124
  21. SODIUM BICARBONATE [Concomitant]
     Dosage: 650 MG, TID
     Dates: start: 20130124
  22. TUMS                               /00193601/ [Concomitant]
     Dosage: 200 MG, TID
     Route: 048
     Dates: start: 20121114

REACTIONS (8)
  - Haemoglobin abnormal [Unknown]
  - Drug resistance [Not Recovered/Not Resolved]
  - Deafness [Unknown]
  - Pyrexia [Not Recovered/Not Resolved]
  - Fatigue [Not Recovered/Not Resolved]
  - Asthenia [Unknown]
  - Lethargy [Unknown]
  - Diarrhoea [Recovered/Resolved]
